FAERS Safety Report 18066770 (Version 5)
Quarter: 2022Q3

REPORT INFORMATION
  Report Type: Spontaneous
  Country: US (occurrence: US)
  Receive Date: 20200724
  Receipt Date: 20220928
  Transmission Date: 20221027
  Serious: Yes (Hospitalization)
  Sender: FDA-Public Use
  Company Number: US-PFIZER INC-2020281219

PATIENT
  Age: 73 Year
  Sex: Female
  Weight: 79.38 kg

DRUGS (4)
  1. XELJANZ XR [Suspect]
     Active Substance: TOFACITINIB CITRATE
     Indication: Psoriatic arthropathy
     Dosage: 11 MG, DAILY
     Route: 048
     Dates: end: 202110
  2. XELJANZ XR [Suspect]
     Active Substance: TOFACITINIB CITRATE
     Dosage: 11 MG, 1X/DAY
  3. LOSARTAN POTASSIUM [Concomitant]
     Active Substance: LOSARTAN POTASSIUM
     Indication: Blood pressure abnormal
     Dosage: UNK (25 MG)
  4. METHOTREXATE [Concomitant]
     Active Substance: METHOTREXATE
     Indication: Arthritis
     Dosage: UNK

REACTIONS (8)
  - Staphylococcal infection [Unknown]
  - Infection [Unknown]
  - Arthralgia [Unknown]
  - Arthropathy [Unknown]
  - Infection [Unknown]
  - Post procedural infection [Unknown]
  - Oropharyngeal pain [Unknown]
  - Speech disorder [Unknown]
